FAERS Safety Report 4395102-2 (Version None)
Quarter: 2004Q3

REPORT INFORMATION
  Report Type: 
  Country: None (occurrence: None)
  Receive Date: 20040706
  Receipt Date: 20040622
  Transmission Date: 20050211
  Serious: Yes (Hospitalization)
  Sender: FDA-Public Use
  Company Number: 04P-144-0264669-00

PATIENT
  Age: 87 Year
  Sex: Male

DRUGS (2)
  1. AKINETON [Suspect]
     Dosage: 4 MG, 1 IN 1 D, PER ORAL
     Route: 048
  2. HALOPERIDOL [Suspect]
     Dosage: 10 DROP, PER ORAL
     Route: 048

REACTIONS (2)
  - ABDOMINAL PAIN [None]
  - IMPAIRED GASTRIC EMPTYING [None]
